FAERS Safety Report 22160851 (Version 1)
Quarter: 2023Q1

REPORT INFORMATION
  Report Type: Spontaneous
  Country: US (occurrence: None)
  Receive Date: 20230330
  Receipt Date: 20230330
  Transmission Date: 20230417
  Serious: Yes (Other)
  Sender: FDA-Public Use
  Company Number: None

PATIENT
  Sex: Female

DRUGS (26)
  1. ENBREL [Suspect]
     Active Substance: ETANERCEPT
     Indication: Rheumatoid arthritis
     Route: 058
     Dates: start: 20211223
  2. ALBUTEROL AER HFA [Concomitant]
  3. ASMANEX [Concomitant]
     Active Substance: MOMETASONE FUROATE
  4. ASPIRIN LOW TAB [Concomitant]
  5. BENZONATATE CAP [Concomitant]
  6. BUSPIRONE TAB [Concomitant]
  7. CEVIMELINE CAP [Concomitant]
  8. CHLORTHALID [Concomitant]
  9. CITALOPRAM [Concomitant]
  10. CITALOPRAM TAB [Concomitant]
  11. CYANOCOBALAM INJ [Concomitant]
  12. CYCLOBENZAPR TAB [Concomitant]
  13. DILTIAZEM CAP [Concomitant]
  14. FLUCONAZOLE TAB [Concomitant]
  15. FOLIC ACID [Concomitant]
  16. GABAPENTIN CAP [Concomitant]
  17. GABAPENTIN TAB [Concomitant]
  18. HYDROXYCHLOR TAB [Concomitant]
  19. JARDIANCE TAB [Concomitant]
  20. METHOCARBAM TAB [Concomitant]
  21. MONTELUKAST SODIUM [Concomitant]
     Active Substance: MONTELUKAST SODIUM
  22. ONDANSETRON TAB [Concomitant]
  23. OZEMPIC [Concomitant]
     Active Substance: SEMAGLUTIDE
  24. POT CHLORIDE TAB [Concomitant]
  25. PREDNISONE [Concomitant]
     Active Substance: PREDNISONE
  26. TRULANCE TAB [Concomitant]

REACTIONS (3)
  - Appendicitis [None]
  - Gangrene [None]
  - Therapy interrupted [None]
